FAERS Safety Report 9706458 (Version 1)
Quarter: 2013Q4

REPORT INFORMATION
  Report Type: Not Available
  Country: US (occurrence: US)
  Receive Date: 20131125
  Receipt Date: 20131125
  Transmission Date: 20140711
  Serious: Yes (Other)
  Sender: FDA-Public Use
  Company Number: 2013SP002579

PATIENT
  Age: 87 Year
  Sex: Male

DRUGS (3)
  1. AMIODARONE [Suspect]
     Indication: ATRIAL FIBRILLATION
     Route: 042
     Dates: start: 200906
  2. AMIODARONE [Suspect]
     Indication: ATRIAL FIBRILLATION
     Route: 042
  3. AMIODARONE [Suspect]
     Indication: ATRIAL FIBRILLATION
     Route: 042
     Dates: end: 200911

REACTIONS (1)
  - Thrombophlebitis [Unknown]
